FAERS Safety Report 7735710-1 (Version None)
Quarter: 2011Q3

REPORT INFORMATION
  Report Type: 
  Country: None (occurrence: None)
  Receive Date: 20110908
  Receipt Date: 20110902
  Transmission Date: 20111222
  Serious: Yes (Other)
  Sender: FDA-Public Use
  Company Number: IT-BIOGENIDEC-2011BI007203

PATIENT
  Age: 30 Year
  Sex: Male

DRUGS (3)
  1. TYSABRI [Suspect]
     Route: 042
     Dates: end: 20110127
  2. TYSABRI [Suspect]
     Indication: MULTIPLE SCLEROSIS
     Route: 042
     Dates: start: 20070401, end: 20100301
  3. TYSABRI [Suspect]
     Route: 042
     Dates: start: 20110314

REACTIONS (1)
  - MULTIPLE SCLEROSIS [None]
